FAERS Safety Report 6666486-7 (Version None)
Quarter: 2010Q2

REPORT INFORMATION
  Report Type: 
  Country: None (occurrence: None)
  Receive Date: 20100402
  Receipt Date: 20100325
  Transmission Date: 20101027
  Serious: Yes (Other)
  Sender: FDA-Public Use
  Company Number: US-AMGEN-KDL402151

PATIENT
  Sex: Female

DRUGS (7)
  1. PROCRIT [Suspect]
     Indication: ANAEMIA OF MALIGNANT DISEASE
     Dates: start: 20080101, end: 20080101
  2. GEMZAR [Concomitant]
  3. UNSPECIFIED ANTIDIABETIC AGENT [Concomitant]
  4. UNSPECIFIED ANTIHYPERTENSIVE AGENT [Concomitant]
  5. LIPITOR [Concomitant]
  6. UNSPECIFIED MEDICATION [Concomitant]
  7. ALIMTA [Concomitant]

REACTIONS (3)
  - BONE PAIN [None]
  - FATIGUE [None]
  - LUNG NEOPLASM [None]
